FAERS Safety Report 26124442 (Version 1)
Quarter: 2025Q4

REPORT INFORMATION
  Report Type: Spontaneous
  Country: EU (occurrence: EU)
  Receive Date: 20251205
  Receipt Date: 20251205
  Transmission Date: 20260118
  Serious: Yes (Hospitalization)
  Sender: TEVA
  Company Number: None

PATIENT
  Age: 24 Year
  Sex: Female
  Weight: 62 kg

DRUGS (1)
  1. OXYCODONE [Suspect]
     Active Substance: OXYCODONE
     Indication: Biliary colic
     Dosage: TIME INTERVAL: AS NECESSARY: VB 2.5MG TABLET OR SUBCUTANEOUS INJECTION. STRENGTH 2.5-5MG
     Route: 065
     Dates: start: 20250920, end: 20250926

REACTIONS (3)
  - Urinary retention [Recovered/Resolved]
  - Sensory loss [Recovered/Resolved]
  - Anal sphincter atony [Recovered/Resolved]

NARRATIVE: CASE EVENT DATE: 20250922
